FAERS Safety Report 8564508-X (Version None)
Quarter: 2012Q3

REPORT INFORMATION
  Report Type: 
  Country: None (occurrence: None)
  Receive Date: 20120803
  Receipt Date: 20120726
  Transmission Date: 20120928
  Serious: Yes (Other)
  Sender: FDA-Public Use
  Company Number: US-JNJFOC-20120800435

PATIENT
  Sex: Male
  Weight: 108.86 kg

DRUGS (1)
  1. REMICADE [Suspect]
     Indication: PSORIATIC ARTHROPATHY
     Route: 042
     Dates: start: 20120501

REACTIONS (6)
  - RIB FRACTURE [None]
  - DYSPHONIA [None]
  - RETCHING [None]
  - HEADACHE [None]
  - NAUSEA [None]
  - VOMITING [None]
